FAERS Safety Report 12632983 (Version 2)
Quarter: 2016Q3

REPORT INFORMATION
  Report Type: Spontaneous
  Country: US (occurrence: US)
  Receive Date: 20160808
  Receipt Date: 20160808
  Transmission Date: 20161109
  Serious: No
  Sender: FDA-Public Use
  Company Number: US-BEH-2016057964

PATIENT
  Sex: Female
  Weight: 68 kg

DRUGS (22)
  1. LMX [Concomitant]
     Active Substance: LIDOCAINE
  2. CALCIUM MAGNESIUM [Concomitant]
     Active Substance: CALCIUM\MAGNESIUM
  3. SYSTANE (HYPROMELLOSE 2910 (4000 MPA.S)) [Concomitant]
     Active Substance: HYPROMELLOSE 2910 (4000 MPA.S)
  4. SYNTHROID [Concomitant]
     Active Substance: LEVOTHYROXINE SODIUM
  5. VITAMIN C [Concomitant]
     Active Substance: ASCORBIC ACID
  6. HIZENTRA [Suspect]
     Active Substance: HUMAN IMMUNOGLOBULIN G
     Indication: HYPER IGM SYNDROME
     Route: 058
     Dates: start: 20140819
  7. TOPIRAMATE. [Concomitant]
     Active Substance: TOPIRAMATE
  8. LIDOCAINE/PRILOCAINE [Concomitant]
     Active Substance: LIDOCAINE\PRILOCAINE
  9. EXCEDRIN [Concomitant]
     Active Substance: ACETAMINOPHEN\ASPIRIN\CAFFEINE
  10. DHA [Concomitant]
     Active Substance: DIETARY SUPPLEMENT
  11. ALLEGRA [Concomitant]
     Active Substance: FEXOFENADINE HYDROCHLORIDE
  12. ACETAMINOPHEN. [Concomitant]
     Active Substance: ACETAMINOPHEN
  13. DIPHENHYDRAMINE. [Concomitant]
     Active Substance: DIPHENHYDRAMINE
  14. COQ10 [Concomitant]
     Active Substance: UBIDECARENONE
  15. VESICARE [Concomitant]
     Active Substance: SOLIFENACIN SUCCINATE
  16. EPIPEN [Concomitant]
     Active Substance: EPINEPHRINE
  17. ESTRACE [Concomitant]
     Active Substance: ESTRADIOL
  18. ZYRTEC [Concomitant]
     Active Substance: CETIRIZINE HYDROCHLORIDE
  19. VITAMIN D [Concomitant]
     Active Substance: CHOLECALCIFEROL
  20. SKELAXIN [Concomitant]
     Active Substance: METAXALONE
  21. LIOTHYRONINE [Concomitant]
     Active Substance: LIOTHYRONINE
  22. TYLENOL [Concomitant]
     Active Substance: ACETAMINOPHEN

REACTIONS (1)
  - Eczema [Unknown]
